FAERS Safety Report 14114993 (Version 1)
Quarter: 2017Q4

REPORT INFORMATION
  Report Type: Report from Study
  Country: CN (occurrence: CN)
  Receive Date: 20171023
  Receipt Date: 20171023
  Transmission Date: 20180321
  Serious: Yes (Death, Other)
  Sender: FDA-Public Use
  Company Number: CN-MYLANLABS-2017M1065698

PATIENT
  Age: 41 Year
  Sex: Female

DRUGS (8)
  1. PALONOSETRON. [Concomitant]
     Active Substance: PALONOSETRON HYDROCHLORIDE
     Indication: ANTIEMETIC SUPPORTIVE CARE
     Dosage: 0.25 MG
     Route: 065
  2. PACLITAXEL. [Suspect]
     Active Substance: PACLITAXEL
     Indication: ANGIOSARCOMA METASTATIC
     Dosage: 90 MG/M2 ON DAYS 1, 8 AND 15 OF A 28 DAY CYCLE
     Route: 042
  3. BEVACIZUMAB. [Suspect]
     Active Substance: BEVACIZUMAB
     Indication: ANGIOSARCOMA METASTATIC
     Dosage: 10 MG/KG ON DAY 1 OF A 28 DAYS CYCLE
     Route: 065
     Dates: start: 20151224
  4. PHENERGAN [Concomitant]
     Active Substance: PROMETHAZINE HYDROCHLORIDE
     Indication: PREMEDICATION
     Dosage: 25 MG; PRIOR TO PACLITAXEL
     Route: 065
  5. OXYCONTIN [Concomitant]
     Active Substance: OXYCODONE HYDROCHLORIDE
     Indication: ABDOMINAL PAIN
     Dosage: 30 MG/12 HOUR
     Route: 065
  6. CIMETIDINE [Concomitant]
     Active Substance: CIMETIDINE
     Indication: PREMEDICATION
     Dosage: 400 MG; PRIOR TO PACLITAXEL
     Route: 065
  7. DEXAMETHASONE. [Concomitant]
     Active Substance: DEXAMETHASONE
     Indication: PREMEDICATION
     Dosage: 5 MG; PRIOR TO PACLITAXEL
     Route: 065
  8. VINORELBINE [Suspect]
     Active Substance: VINORELBINE\VINORELBINE TARTRATE
     Indication: ANGIOSARCOMA METASTATIC
     Dosage: 25 MG/M2 ON DAYS 1 AND 8 OF A 28 DAY CYCLE
     Route: 042

REACTIONS (3)
  - Respiratory failure [Fatal]
  - Anaemia [Unknown]
  - Neutropenia [Unknown]

NARRATIVE: CASE EVENT DATE: 20160108
